FAERS Safety Report 9120205 (Version 1)
Quarter: 2013Q1

REPORT INFORMATION
  Report Type: Spontaneous
  Country: US (occurrence: US)
  Receive Date: 20130226
  Receipt Date: 20130226
  Transmission Date: 20140127
  Serious: Yes (Hospitalization, Other)
  Sender: FDA-Public Use
  Company Number: US-PFIZER INC-2006091216

PATIENT
  Age: 66 Year
  Sex: Male

DRUGS (6)
  1. SILDENAFIL [Suspect]
     Dosage: UNK
     Route: 065
  2. METOPROLOL [Concomitant]
     Dosage: UNK
     Route: 065
  3. FUROSEMIDE [Concomitant]
     Dosage: UNK
     Route: 065
  4. ASPIRIN [Concomitant]
     Route: 065
  5. SIMVASTATIN [Concomitant]
     Route: 065
  6. WARFARIN [Concomitant]
     Route: 065

REACTIONS (3)
  - Myocardial infarction [Recovered/Resolved]
  - Coronary artery occlusion [Recovered/Resolved]
  - Coronary artery thrombosis [Recovering/Resolving]
